FAERS Safety Report 10566108 (Version 3)
Quarter: 2014Q4

REPORT INFORMATION
  Report Type: Spontaneous
  Country: US (occurrence: US)
  Receive Date: 20141105
  Receipt Date: 20141126
  Transmission Date: 20150529
  Serious: Yes (Other)
  Sender: FDA-Public Use
  Company Number: US-SA-CAMP-1002689

PATIENT
  Age: 61 Year
  Sex: Female

DRUGS (3)
  1. ALEMTUZUMAB [Suspect]
     Active Substance: ALEMTUZUMAB
     Indication: NEUROMYELITIS OPTICA
     Dosage: 12 MG, QD FOR 5 DAYS
     Route: 042
     Dates: start: 2012, end: 2012
  2. PREDNISONE. [Concomitant]
     Active Substance: PREDNISONE
     Dosage: DOSE: TAPERED FROM 20 MG/DAY TO 10 MG/DAY OVER THE NEXT YEAR
  3. ALEMTUZUMAB [Suspect]
     Active Substance: ALEMTUZUMAB
     Indication: NEUROMYELITIS OPTICA
     Dosage: 12 MG, QD FOR 5 DAYS
     Route: 042
     Dates: start: 201103, end: 201103

REACTIONS (9)
  - Off label use [Unknown]
  - Urosepsis [Unknown]
  - Clostridium difficile infection [Unknown]
  - Blindness [Unknown]
  - Weight decreased [Unknown]
  - Vomiting [Unknown]
  - Soft tissue injury [Unknown]
  - Nausea [Unknown]
  - Disease progression [Unknown]
